FAERS Safety Report 21332958 (Version 1)
Quarter: 2022Q3

REPORT INFORMATION
  Report Type: Spontaneous
  Country: US (occurrence: None)
  Receive Date: 20220913
  Receipt Date: 20220913
  Transmission Date: 20221027
  Serious: No
  Sender: FDA-Public Use
  Company Number: None

PATIENT
  Sex: Female

DRUGS (1)
  1. ALBENDAZOLE [Suspect]
     Active Substance: ALBENDAZOLE
     Dosage: OTHER FREQUENCY : ONCE, RPT IN 2WKS;?
     Route: 048

REACTIONS (4)
  - Chills [None]
  - Cold sweat [None]
  - Feeling abnormal [None]
  - Feeling abnormal [None]

NARRATIVE: CASE EVENT DATE: 20220817
